FAERS Safety Report 6240857-5 (Version None)
Quarter: 2009Q2

REPORT INFORMATION
  Report Type: 
  Country: None (occurrence: None)
  Receive Date: 20090611
  Receipt Date: 20090602
  Transmission Date: 20091009
  Serious: Yes (Hospitalization)
  Sender: FDA-Public Use
  Company Number: ADR2252009

PATIENT
  Age: 70 Year
  Sex: Female

DRUGS (8)
  1. RAMIPRIL [Suspect]
     Indication: HYPERTENSION
     Dosage: 10 MG ORAL
     Route: 048
     Dates: start: 20090415
  2. KINZALKOMIB/BAYER VITAL (HYDROCHLOROTHIAZIDE / TELMISARTAN) [Concomitant]
  3. TRAMAL/GRUENENTHAL (TRAMADOL HYDROCHLORIDE) [Concomitant]
  4. TRIMIPRAMINE MALEATE [Concomitant]
  5. METOPROLOL SUCCINATE [Concomitant]
  6. PANTOPRAZOLE SODIUM [Concomitant]
  7. SIMVASTATIN [Concomitant]
  8. ZOLPIDEM [Concomitant]

REACTIONS (2)
  - HYPERTENSIVE CRISIS [None]
  - HYPONATRAEMIA [None]
